FAERS Safety Report 9262141 (Version 2)
Quarter: 2013Q2

REPORT INFORMATION
  Report Type: Report from Study
  Country: CA (occurrence: CA)
  Receive Date: 20130430
  Receipt Date: 20130507
  Transmission Date: 20140414
  Serious: Yes (Other)
  Sender: FDA-Public Use
  Company Number: CA-ROCHE-1202229

PATIENT
  Age: 31 Year
  Sex: Female
  Weight: 96 kg

DRUGS (8)
  1. AVASTIN [Suspect]
     Indication: GLIOBLASTOMA
     Route: 042
     Dates: start: 20130130, end: 20130404
  2. TYLENOL [Concomitant]
     Indication: PREMEDICATION
     Route: 048
     Dates: start: 20130130, end: 20130404
  3. BENADRYL [Concomitant]
     Indication: PREMEDICATION
     Route: 048
     Dates: start: 20130130, end: 20130404
  4. SOLU-MEDROL [Concomitant]
     Indication: PREMEDICATION
     Route: 042
     Dates: start: 20130130, end: 20130404
  5. PANTOLOC [Concomitant]
  6. DECADRON [Concomitant]
  7. KEPPRA [Concomitant]
  8. METHOTREXATE [Concomitant]

REACTIONS (3)
  - Periorbital cellulitis [Unknown]
  - Disease progression [Unknown]
  - Herpes zoster [Unknown]
